FAERS Safety Report 23783679 (Version 1)
Quarter: 2024Q2

REPORT INFORMATION
  Report Type: Spontaneous
  Country: US (occurrence: US)
  Receive Date: 20240425
  Receipt Date: 20240425
  Transmission Date: 20240716
  Serious: Yes (Other)
  Sender: FDA-Public Use
  Company Number: US-SA-2024SA122216

PATIENT
  Age: 60 Year
  Sex: Female

DRUGS (1)
  1. ANTI-THYMOCYTE GLOBULIN (RABBIT) NOS [Suspect]
     Active Substance: LAPINE T-LYMPHOCYTE IMMUNE GLOBULIN

REACTIONS (10)
  - Multiple organ dysfunction syndrome [Recovered/Resolved]
  - Acute respiratory distress syndrome [Recovering/Resolving]
  - Respiratory tract infection viral [Recovering/Resolving]
  - Conjunctivitis [Recovering/Resolving]
  - Rash [Recovering/Resolving]
  - Hypoxia [Recovering/Resolving]
  - Pyrexia [Recovering/Resolving]
  - Aspergillus infection [Recovering/Resolving]
  - Exfoliative rash [Recovering/Resolving]
  - Parainfluenzae virus infection [Unknown]
